FAERS Safety Report 4376232-8 (Version None)
Quarter: 2004Q2

REPORT INFORMATION
  Report Type: 
  Country: None (occurrence: None)
  Receive Date: 20040608
  Receipt Date: 20030327
  Transmission Date: 20050107
  Serious: Yes (Other)
  Sender: FDA-Public Use
  Company Number: 200311035BCC

PATIENT
  Age: 64 Year
  Sex: Male
  Weight: 88.4514 kg

DRUGS (1)
  1. ALEVE [Suspect]
     Indication: PYREXIA
     Dosage: 440 MG, ONCE, ORAL
     Route: 048
     Dates: start: 20030325

REACTIONS (5)
  - EYE SWELLING [None]
  - HYPERSENSITIVITY [None]
  - OROPHARYNGEAL SWELLING [None]
  - SENSATION OF FOREIGN BODY [None]
  - URTICARIA [None]
